FAERS Safety Report 24839060 (Version 5)
Quarter: 2025Q1

REPORT INFORMATION
  Report Type: Report from Study
  Country: BR (occurrence: BR)
  Receive Date: 20250114
  Receipt Date: 20250312
  Transmission Date: 20250408
  Serious: Yes (Life-Threatening, Hospitalization, Other)
  Sender: AMGEN
  Company Number: BR-AMGEN-BRASL2025005954

PATIENT
  Age: 58 Year
  Sex: Male

DRUGS (7)
  1. BLINCYTO [Suspect]
     Active Substance: BLINATUMOMAB
     Indication: B precursor type acute leukaemia
     Route: 065
     Dates: start: 20230816
  2. BLINCYTO [Suspect]
     Active Substance: BLINATUMOMAB
     Route: 065
     Dates: start: 20241216, end: 20241223
  3. BLINCYTO [Suspect]
     Active Substance: BLINATUMOMAB
     Route: 065
     Dates: start: 20250120, end: 2025
  4. BLINCYTO [Suspect]
     Active Substance: BLINATUMOMAB
     Route: 065
     Dates: start: 2025
  5. ACYCLOVIR [Concomitant]
     Active Substance: ACYCLOVIR
  6. PONATINIB [Concomitant]
     Active Substance: PONATINIB
  7. URSODIOL [Concomitant]
     Active Substance: URSODIOL

REACTIONS (6)
  - COVID-19 [Recovering/Resolving]
  - Immune effector cell-associated neurotoxicity syndrome [Recovering/Resolving]
  - Feeling cold [Unknown]
  - Tremor [Unknown]
  - B precursor type acute leukaemia [Unknown]
  - Overdose [Unknown]

NARRATIVE: CASE EVENT DATE: 20230101
